FAERS Safety Report 16393987 (Version 1)
Quarter: 2019Q3

REPORT INFORMATION
  Report Type: Spontaneous
  Country: US (occurrence: US)
  Receive Date: 20190603
  Receipt Date: 20190603
  Transmission Date: 20191004
  Serious: Yes (Other)
  Sender: FDA-Public Use
  Company Number: None

PATIENT
  Age: 47 Year
  Sex: Male
  Weight: 61 kg

DRUGS (6)
  1. METOCLOPRAMIDE. [Suspect]
     Active Substance: METOCLOPRAMIDE
     Indication: VOMITING
     Dosage: ?          OTHER ROUTE:GASTROSTOMY TUBE?
     Dates: start: 20190215, end: 20190326
  2. LEVITIRACETAM 3000MG BID [Concomitant]
  3. ESOMEPRAZOLE 20MG DAILY [Concomitant]
  4. PHENYTOIN 100MG BID [Concomitant]
  5. LACOSAMIDE 200MG BID [Concomitant]
  6. LACTULOSE 60GM QID [Concomitant]

REACTIONS (1)
  - Extrapyramidal disorder [None]

NARRATIVE: CASE EVENT DATE: 20190326
